FAERS Safety Report 24004568 (Version 2)
Quarter: 2024Q3

REPORT INFORMATION
  Report Type: Spontaneous
  Country: US (occurrence: US)
  Receive Date: 20240624
  Receipt Date: 20240722
  Transmission Date: 20241016
  Serious: Yes (Other)
  Sender: SANOFI AVENTIS
  Company Number: US-SA-SAC20240620001516

PATIENT
  Sex: Female

DRUGS (34)
  1. DUPIXENT [Suspect]
     Active Substance: DUPILUMAB
     Indication: Asthma
     Dosage: 200 MG, QOW
     Route: 058
  2. CETIRIZINE HCL [Concomitant]
     Active Substance: CETIRIZINE HYDROCHLORIDE
     Dosage: UNK
  3. ESTRADIOL [Concomitant]
     Active Substance: ESTRADIOL
     Dosage: UNK
  4. ESTRADIOL [Concomitant]
     Active Substance: ESTRADIOL
  5. FLONASE ALLERGY RELIEF [Concomitant]
     Active Substance: FLUTICASONE PROPIONATE
     Dosage: UNK
  6. LINZESS [Concomitant]
     Active Substance: LINACLOTIDE
     Dosage: UNK
  7. LINZESS [Concomitant]
     Active Substance: LINACLOTIDE
  8. AMLODIPINE [Concomitant]
     Active Substance: AMLODIPINE BESYLATE
     Dosage: UNK
  9. BREO ELLIPTA [Concomitant]
     Active Substance: FLUTICASONE FUROATE\VILANTEROL TRIFENATATE
     Dosage: UNK
  10. BREO ELLIPTA [Concomitant]
     Active Substance: FLUTICASONE FUROATE\VILANTEROL TRIFENATATE
  11. ESCITALOPRAM [Concomitant]
     Active Substance: ESCITALOPRAM OXALATE
     Dosage: UNK
  12. ESCITALOPRAM [Concomitant]
     Active Substance: ESCITALOPRAM OXALATE
  13. LORAZEPAM [Concomitant]
     Active Substance: LORAZEPAM
     Dosage: UNK
  14. LORAZEPAM [Concomitant]
     Active Substance: LORAZEPAM
  15. MONTELUKAST [Concomitant]
     Active Substance: MONTELUKAST SODIUM
     Dosage: 10 MG
  16. MONTELUKAST [Concomitant]
     Active Substance: MONTELUKAST SODIUM
     Dosage: 10MGS
  17. OXYBUTYNIN [Concomitant]
     Active Substance: OXYBUTYNIN\OXYBUTYNIN CHLORIDE
     Dosage: UNK
  18. THEOPHYLLINE [Concomitant]
     Active Substance: THEOPHYLLINE
     Dosage: UNK
  19. THEOPHYLLINE [Concomitant]
     Active Substance: THEOPHYLLINE
  20. TRAZODONE HCL [Concomitant]
     Active Substance: TRAZODONE HYDROCHLORIDE
     Dosage: UNK
  21. TRIAMCINOLONE [Concomitant]
     Active Substance: TRIAMCINOLONE
     Dosage: UNK
  22. SPIRONOLACTONE [Concomitant]
     Active Substance: SPIRONOLACTONE
     Dosage: UNK
  23. LEVOTHYROXINE [Concomitant]
     Active Substance: LEVOTHYROXINE\LEVOTHYROXINE SODIUM
     Dosage: UNK
  24. DEXLANSOPRAZOLE [Concomitant]
     Active Substance: DEXLANSOPRAZOLE
     Dosage: UNK
  25. METHYLTESTOST [Concomitant]
     Dosage: UNK
  26. VITAMINS NOS [Concomitant]
     Active Substance: VITAMINS
     Dosage: UNK
  27. VITAMINS NOS [Concomitant]
     Active Substance: VITAMINS
  28. CETIRIZINE HYDROCHLORIDE [Concomitant]
     Active Substance: CETIRIZINE HYDROCHLORIDE
  29. FLONASE [Concomitant]
     Active Substance: FLUTICASONE PROPIONATE
  30. AMLODIPINE BESYLATE [Concomitant]
     Active Substance: AMLODIPINE BESYLATE
  31. OXYBUTYNIN CHLORIDE [Concomitant]
     Active Substance: OXYBUTYNIN CHLORIDE
  32. TRAZODONE HYDROCHLORIDE [Concomitant]
     Active Substance: TRAZODONE HYDROCHLORIDE
  33. METHYLTESTOSTERONE [Concomitant]
     Active Substance: METHYLTESTOSTERONE
  34. DEXLANSOPRAZOLE [Concomitant]
     Active Substance: DEXLANSOPRAZOLE

REACTIONS (4)
  - Cataract [Not Recovered/Not Resolved]
  - Raynaud^s phenomenon [Unknown]
  - Skin burning sensation [Unknown]
  - Arthralgia [Not Recovered/Not Resolved]
